FAERS Safety Report 13593164 (Version 1)
Quarter: 2017Q2

REPORT INFORMATION
  Report Type: Spontaneous
  Country: ES (occurrence: ES)
  Receive Date: 20170530
  Receipt Date: 20170530
  Transmission Date: 20170830
  Serious: Yes (Other)
  Sender: FDA-Public Use
  Company Number: ES-REGENERON PHARMACEUTICALS, INC.-2017-16262

PATIENT

DRUGS (2)
  1. AFLIBERCEPT IAI [Suspect]
     Active Substance: AFLIBERCEPT
     Indication: MACULAR DEGENERATION
     Dosage: UNK
  2. AFLIBERCEPT IAI [Suspect]
     Active Substance: AFLIBERCEPT
     Indication: RETINAL ANEURYSM

REACTIONS (2)
  - Retinal aneurysm [Unknown]
  - Product use in unapproved indication [Unknown]
